FAERS Safety Report 6128563-9 (Version None)
Quarter: 2009Q1

REPORT INFORMATION
  Report Type: 
  Country: None (occurrence: None)
  Receive Date: 20090323
  Receipt Date: 20090318
  Transmission Date: 20090719
  Serious: Yes (Other)
  Sender: FDA-Public Use
  Company Number: FR-ROXANE LABORATORIES, INC.-2009-RO-00258RO

PATIENT
  Age: 52 Year
  Sex: Female

DRUGS (2)
  1. PREDNISONE [Suspect]
     Indication: PERIARTHRITIS
     Dosage: 20MG
  2. DEXAMETHASONE [Suspect]
     Indication: ANGIOEDEMA
     Route: 042

REACTIONS (2)
  - DRUG HYPERSENSITIVITY [None]
  - PERIARTHRITIS [None]
